FAERS Safety Report 8454332-0 (Version None)
Quarter: 2012Q2

REPORT INFORMATION
  Report Type: 
  Country: None (occurrence: None)
  Receive Date: 20120621
  Receipt Date: 20120306
  Transmission Date: 20120825
  Serious: No
  Sender: FDA-Public Use
  Company Number: US-ALLERGAN-1203197US

PATIENT
  Sex: Female

DRUGS (2)
  1. LUMIGAN [Suspect]
     Indication: INTRAOCULAR PRESSURE TEST
     Dosage: ONE DROP TO EACH EYE, ONCE AT NIGHT
     Route: 047
     Dates: start: 20120302
  2. COMBIGAN [Suspect]
     Indication: INTRAOCULAR PRESSURE TEST
     Dosage: ONE DROP TO EACH EYE, TWICE PER DAY
     Route: 047
     Dates: start: 20120302

REACTIONS (2)
  - OCULAR HYPERAEMIA [None]
  - BURNING SENSATION [None]
